FAERS Safety Report 8175226-4 (Version None)
Quarter: 2012Q1

REPORT INFORMATION
  Report Type: 
  Country: None (occurrence: None)
  Receive Date: 20120227
  Receipt Date: 20120214
  Transmission Date: 20120608
  Serious: Yes (Hospitalization)
  Sender: FDA-Public Use
  Company Number: DSM-2012-00217

PATIENT
  Age: 79 Year
  Sex: Male

DRUGS (7)
  1. PREVISCAN (FLUINDIONE) (FLUINDIONE) [Suspect]
     Indication: ATRIAL FIBRILLATION
     Dosage: ORAL
     Route: 048
     Dates: start: 20110701, end: 20111031
  2. PANTOPRAZOLE [Concomitant]
  3. OLMESARTAN MEDOXOMIL [Suspect]
     Indication: PRODUCT USED FOR UNKNOWN INDICATION
     Dosage: 20 MG, ORAL
     Route: 048
  4. BISOPROLOL FUMARATE [Concomitant]
  5. COTANCYL (PREDNISONE) [Concomitant]
  6. ACTONEL [Concomitant]
  7. LACTULOSE [Concomitant]

REACTIONS (2)
  - RENAL FAILURE [None]
  - TUBULOINTERSTITIAL NEPHRITIS [None]
